FAERS Safety Report 16345605 (Version 1)
Quarter: 2019Q2

REPORT INFORMATION
  Report Type: Spontaneous
  Country: SE (occurrence: SE)
  Receive Date: 20190523
  Receipt Date: 20190523
  Transmission Date: 20190711
  Serious: Yes (Other)
  Sender: FDA-Public Use
  Company Number: SE-BIOGEN-2019BI00739509

PATIENT
  Age: 44 Year
  Sex: Female

DRUGS (1)
  1. AVONEX [Suspect]
     Active Substance: INTERFERON BETA-1A
     Indication: MULTIPLE SCLEROSIS
     Route: 030
     Dates: start: 20150722, end: 20180629

REACTIONS (2)
  - Pulmonary sarcoidosis [Recovered/Resolved]
  - Cutaneous sarcoidosis [Recovered/Resolved]

NARRATIVE: CASE EVENT DATE: 20180423
